FAERS Safety Report 4926202-3 (Version None)
Quarter: 2006Q1

REPORT INFORMATION
  Report Type: 
  Country: None (occurrence: None)
  Receive Date: 20060224
  Receipt Date: 20060224
  Transmission Date: 20060701
  Serious: Yes (Life-Threatening, Other)
  Sender: FDA-Public Use
  Company Number: None

PATIENT
  Sex: Male
  Weight: 3.6288 kg

DRUGS (1)
  1. TPN [Suspect]

REACTIONS (7)
  - BLOOD CALCIUM INCREASED [None]
  - INCORRECT DOSE ADMINISTERED [None]
  - INFUSION SITE REACTION [None]
  - INFUSION SITE SWELLING [None]
  - LOCALISED OEDEMA [None]
  - MEDICATION ERROR [None]
  - SKIN DISCOLOURATION [None]
